FAERS Safety Report 16019925 (Version 1)
Quarter: 2019Q1

REPORT INFORMATION
  Report Type: Not Available
  Country: DK (occurrence: DK)
  Receive Date: 20190228
  Receipt Date: 20190228
  Transmission Date: 20190418
  Serious: No
  Sender: FDA-Public Use
  Company Number: DK-LEXICON PHARMACEUTICALS, INC-19-1606-00204

PATIENT
  Age: 58 Year
  Sex: Male

DRUGS (2)
  1. IPSTYL AUTOGEL [Concomitant]
     Dates: start: 20180509
  2. TELOTRISTAT ETHYL [Suspect]
     Active Substance: TELOTRISTAT ETHYL
     Indication: GASTROENTEROPANCREATIC NEUROENDOCRINE TUMOUR DISEASE
     Route: 048
     Dates: start: 20181122

REACTIONS (2)
  - Abdominal pain upper [Recovered/Resolved]
  - Dizziness [Recovered/Resolved]

NARRATIVE: CASE EVENT DATE: 20181208
